FAERS Safety Report 8615068-6 (Version None)
Quarter: 2012Q3

REPORT INFORMATION
  Report Type: 
  Country: None (occurrence: None)
  Receive Date: 20120823
  Receipt Date: 20120821
  Transmission Date: 20120928
  Serious: Yes (Death, Hospitalization, Other)
  Sender: FDA-Public Use
  Company Number: PHHY2010CA86148

PATIENT
  Sex: Male

DRUGS (4)
  1. EXJADE [Suspect]
     Indication: MYELODYSPLASTIC SYNDROME
     Dosage: 1500 MG, QD
     Route: 048
     Dates: start: 20101022
  2. OMEPRAZOLE [Concomitant]
     Dosage: 20 MG, QD
  3. CITALOPRAM HYDROBROMIDE [Concomitant]
     Indication: DEPRESSION
  4. TRANSFUSIONS [Concomitant]

REACTIONS (12)
  - PNEUMONIA [None]
  - ROAD TRAFFIC ACCIDENT [None]
  - LEUKAEMIA [None]
  - DEMENTIA [None]
  - INFLUENZA [None]
  - NASOPHARYNGITIS [None]
  - FATIGUE [None]
  - PRURITUS [None]
  - DEATH [None]
  - COUGH [None]
  - MUSCLE STRAIN [None]
  - BACK PAIN [None]
